FAERS Safety Report 14751111 (Version 1)
Quarter: 2018Q2

REPORT INFORMATION
  Report Type: Spontaneous
  Country: US (occurrence: US)
  Receive Date: 20180412
  Receipt Date: 20180412
  Transmission Date: 20180711
  Serious: Yes (Other)
  Sender: FDA-Public Use
  Company Number: PHEH2018US012773

PATIENT
  Sex: Male

DRUGS (3)
  1. AMANTADINE. [Suspect]
     Active Substance: AMANTADINE HYDROCHLORIDE
     Indication: PRODUCT USED FOR UNKNOWN INDICATION
     Route: 065
  2. NORTHERA [Suspect]
     Active Substance: DROXIDOPA
     Indication: PRODUCT USED FOR UNKNOWN INDICATION
     Dosage: UNK
     Route: 065
     Dates: start: 20141002, end: 20180221
  3. NORTHERA [Suspect]
     Active Substance: DROXIDOPA
     Dosage: UNK
     Route: 065
     Dates: start: 20180310

REACTIONS (5)
  - Hypoxia [Unknown]
  - Pneumonia [Unknown]
  - Parkinson^s disease [Unknown]
  - Mental status changes [Unknown]
  - Sensory disturbance [Unknown]
